FAERS Safety Report 9354241 (Version 2)
Quarter: 2013Q3

REPORT INFORMATION
  Report Type: Report from Study
  Country: US (occurrence: US)
  Receive Date: 20130618
  Receipt Date: 20130806
  Transmission Date: 20140515
  Serious: Yes (Hospitalization)
  Sender: FDA-Public Use
  Company Number: US-ASTRAZENECA-2012SE91086

PATIENT
  Age: 53 Year
  Sex: Male
  Weight: 117.9 kg

DRUGS (17)
  1. SEROQUEL XR [Suspect]
     Indication: BIPOLAR DISORDER
     Route: 048
     Dates: start: 2005
  2. SEROQUEL XR [Suspect]
     Indication: BIPOLAR I DISORDER
     Route: 048
     Dates: start: 2005
  3. SEROQUEL XR [Suspect]
     Indication: HALLUCINATION, AUDITORY
     Route: 048
     Dates: start: 2005
  4. SEROQUEL XR [Suspect]
     Indication: BIPOLAR DISORDER
     Route: 048
     Dates: start: 2006
  5. SEROQUEL XR [Suspect]
     Indication: BIPOLAR I DISORDER
     Route: 048
     Dates: start: 2006
  6. SEROQUEL XR [Suspect]
     Indication: HALLUCINATION, AUDITORY
     Route: 048
     Dates: start: 2006
  7. SEROQUEL XR [Suspect]
     Indication: BIPOLAR DISORDER
     Route: 048
     Dates: end: 20130726
  8. SEROQUEL XR [Suspect]
     Indication: BIPOLAR I DISORDER
     Route: 048
     Dates: end: 20130726
  9. SEROQUEL XR [Suspect]
     Indication: HALLUCINATION, AUDITORY
     Route: 048
     Dates: end: 20130726
  10. SEROQUEL XR [Suspect]
     Indication: BIPOLAR DISORDER
     Route: 048
     Dates: start: 20130729
  11. SEROQUEL XR [Suspect]
     Indication: BIPOLAR I DISORDER
     Route: 048
     Dates: start: 20130729
  12. SEROQUEL XR [Suspect]
     Indication: HALLUCINATION, AUDITORY
     Route: 048
     Dates: start: 20130729
  13. LAMICTAL [Concomitant]
     Indication: BIPOLAR I DISORDER
     Dates: start: 2005
  14. LAMICTAL [Concomitant]
     Indication: AFFECTIVE DISORDER
     Dates: start: 2005
  15. LITHIUM [Concomitant]
     Indication: AFFECTIVE DISORDER
     Dates: start: 2007
  16. LITHIUM [Concomitant]
     Indication: AFFECTIVE DISORDER
  17. LITHIUM [Concomitant]
     Indication: AFFECTIVE DISORDER

REACTIONS (13)
  - Insomnia [Unknown]
  - Mania [Unknown]
  - Tachyphrenia [Unknown]
  - Anxiety [Unknown]
  - Weight increased [Unknown]
  - Arthropathy [Unknown]
  - Musculoskeletal disorder [Unknown]
  - Confusional state [Unknown]
  - Condition aggravated [Unknown]
  - Activities of daily living impaired [Unknown]
  - Dizziness [Unknown]
  - Intentional drug misuse [Recovered/Resolved]
  - Drug dose omission [Unknown]
